FAERS Safety Report 5383216-X (Version None)
Quarter: 2007Q3

REPORT INFORMATION
  Report Type: 
  Country: None (occurrence: None)
  Receive Date: 20070710
  Receipt Date: 20070628
  Transmission Date: 20080115
  Serious: Yes (Other)
  Sender: FDA-Public Use
  Company Number: DE-PFIZER INC-2007054267

PATIENT
  Age: 32 Year
  Sex: Male

DRUGS (1)
  1. ZELDOX (CAPSULES) [Suspect]
     Indication: BORDERLINE PERSONALITY DISORDER

REACTIONS (3)
  - GAZE PALSY [None]
  - OVERWEIGHT [None]
  - SLEEP DISORDER [None]
